FAERS Safety Report 14776698 (Version 1)
Quarter: 2018Q2

REPORT INFORMATION
  Report Type: Spontaneous
  Country: FR (occurrence: FR)
  Receive Date: 20180419
  Receipt Date: 20180419
  Transmission Date: 20180711
  Serious: Yes (Other)
  Sender: FDA-Public Use
  Company Number: FR-MERCK KGAA-2046000

PATIENT
  Sex: Female

DRUGS (1)
  1. NOVOTHYROX [Suspect]
     Active Substance: LEVOTHYROXINE SODIUM
     Indication: PRODUCT USED FOR UNKNOWN INDICATION

REACTIONS (11)
  - Muscle spasms [None]
  - Marital problem [None]
  - Fatigue [None]
  - Insomnia [None]
  - Diarrhoea [None]
  - Constipation [None]
  - Suicidal ideation [None]
  - Blindness [None]
  - Asthenia [None]
  - Vitreous disorder [None]
  - Decreased interest [None]
